FAERS Safety Report 9491940 (Version 1)
Quarter: 2013Q3

REPORT INFORMATION
  Report Type: Spontaneous
  Country: US (occurrence: US)
  Receive Date: 20130830
  Receipt Date: 20130830
  Transmission Date: 20140515
  Serious: No
  Sender: FDA-Public Use
  Company Number: US-PFIZER INC-2013247229

PATIENT
  Age: 58 Year
  Sex: Female
  Weight: 62.36 kg

DRUGS (4)
  1. ESTRING [Suspect]
     Indication: VULVOVAGINAL DRYNESS
     Dosage: UNK
     Route: 067
     Dates: end: 20130824
  2. LOZOL [Concomitant]
     Indication: NEPHROLITHIASIS
     Dosage: 2.5 MG, 1X/DAY
     Route: 048
  3. FOLIC ACID [Concomitant]
     Dosage: 1 MG, UNK
  4. POTASSIUM [Concomitant]
     Indication: HYPOKALAEMIA
     Dosage: 20 MEQ, UNK

REACTIONS (3)
  - Vulvovaginal mycotic infection [Unknown]
  - Nasopharyngitis [Unknown]
  - Vaginal discharge [Unknown]
